FAERS Safety Report 5399522-9 (Version None)
Quarter: 2007Q3

REPORT INFORMATION
  Report Type: 
  Country: None (occurrence: None)
  Receive Date: 20070727
  Receipt Date: 20070712
  Transmission Date: 20080115
  Serious: Yes (Death, Hospitalization, Other)
  Sender: FDA-Public Use
  Company Number: US-PFIZER INC-2006150462

PATIENT
  Sex: Male
  Weight: 95.3 kg

DRUGS (7)
  1. BEXTRA [Suspect]
     Indication: PAIN
     Route: 048
  2. VIOXX [Suspect]
     Indication: BACK PAIN
     Route: 048
     Dates: start: 20000413, end: 20020719
  3. VIOXX [Suspect]
     Indication: PAIN IN EXTREMITY
  4. CYCLOBENZAPRINE HCL [Concomitant]
     Dates: start: 20000630, end: 20050624
  5. HYDROCODONE BITARTRATE [Concomitant]
     Dates: start: 19991221, end: 20050624
  6. LIPITOR [Concomitant]
     Dates: start: 20010627, end: 20020606
  7. FOLIC ACID [Concomitant]
     Dates: start: 20010615, end: 20030608

REACTIONS (1)
  - MYOCARDIAL INFARCTION [None]
